FAERS Safety Report 5230219-1 (Version None)
Quarter: 2007Q1

REPORT INFORMATION
  Report Type: 
  Country: None (occurrence: None)
  Receive Date: 20070206
  Receipt Date: 20061006
  Transmission Date: 20070707
  Serious: No
  Sender: FDA-Public Use
  Company Number: US-GLAXOSMITHKLINE-A0622750A

PATIENT
  Age: 43 Year
  Sex: Female

DRUGS (3)
  1. PAXIL CR [Suspect]
     Dosage: 37.5MG PER DAY
     Route: 048
     Dates: start: 20060601, end: 20060901
  2. TRAZODONE HCL [Concomitant]
  3. TOPAMAX [Concomitant]

REACTIONS (1)
  - PANIC ATTACK [None]
